APPROVED DRUG PRODUCT: APTENSIO XR
Active Ingredient: METHYLPHENIDATE HYDROCHLORIDE
Strength: 30MG
Dosage Form/Route: CAPSULE, EXTENDED RELEASE;ORAL
Application: N205831 | Product #004 | TE Code: AB3
Applicant: RHODES PHARMACEUTICALS LP
Approved: Apr 17, 2015 | RLD: Yes | RS: No | Type: RX